FAERS Safety Report 4354701-4 (Version None)
Quarter: 2004Q2

REPORT INFORMATION
  Report Type: 
  Country: None (occurrence: None)
  Receive Date: 20040503
  Receipt Date: 20040420
  Transmission Date: 20050107
  Serious: Yes (Disabling, Other)
  Sender: FDA-Public Use
  Company Number: US-JNJFOC-20040301215

PATIENT
  Age: 84 Year
  Sex: Male
  Weight: 88.4514 kg

DRUGS (12)
  1. LEVAQUIN [Suspect]
     Indication: DIVERTICULITIS
     Dosage: 500 MG, 1 IN 1 DAY, ORAL
     Route: 048
     Dates: start: 20040115, end: 20040120
  2. AMBIEN [Concomitant]
  3. BACLOFIN (BACLOFEN) [Concomitant]
  4. CYCLOBENZAPRINE [Concomitant]
  5. LISINOPRIL [Concomitant]
  6. VICODEN (VICODIN) [Concomitant]
  7. HYDROCODONE [Concomitant]
  8. PLAQUENIL [Concomitant]
  9. DIABETIC MEDICATION (DRUG USED IN DIABETES) [Concomitant]
  10. PREDNISONE [Concomitant]
  11. PREVACID [Concomitant]
  12. NITROGLYCERIN [Concomitant]

REACTIONS (10)
  - FIBROMYALGIA [None]
  - HYPOAESTHESIA [None]
  - MUSCLE CRAMP [None]
  - MUSCLE TIGHTNESS [None]
  - MYALGIA [None]
  - NEUROPATHY PERIPHERAL [None]
  - PAIN IN EXTREMITY [None]
  - SENSORY LOSS [None]
  - TENDON DISORDER [None]
  - THINKING ABNORMAL [None]
